FAERS Safety Report 18915523 (Version 36)
Quarter: 2022Q2

REPORT INFORMATION
  Report Type: Other
  Country: GB (occurrence: DK)
  Receive Date: 20210219
  Receipt Date: 20220602
  Transmission Date: 20220721
  Serious: Yes (Death, Life-Threatening, Hospitalization, Disabling, Other)
  Sender: FDA-Public Use
  Company Number: GB-KYOWAKIRIN-2020BKK015405AA

PATIENT
  Age: 5 Year
  Sex: Male
  Weight: 9.7 kg

DRUGS (46)
  1. PENICILLIN G [Suspect]
     Active Substance: PENICILLIN G
     Indication: Mumps immunisation
     Route: 065
  2. PENICILLIN G [Suspect]
     Active Substance: PENICILLIN G
     Indication: Antibiotic therapy
  3. MUMPS VACCINE [Suspect]
     Active Substance: MUMPS VIRUS STRAIN B LEVEL JERYL LYNN LIVE ANTIGEN
     Indication: Product used for unknown indication
     Route: 065
  4. FENTANYL [Suspect]
     Active Substance: FENTANYL
     Indication: Intestinal ischaemia
     Route: 065
  5. FENTANYL [Suspect]
     Active Substance: FENTANYL
     Indication: Pneumonia aspiration
     Route: 065
  6. FENTANYL [Suspect]
     Active Substance: FENTANYL
     Indication: Interstitial lung disease
  7. FENTANYL [Suspect]
     Active Substance: FENTANYL
     Indication: Circulatory collapse
  8. FENTANYL [Suspect]
     Active Substance: FENTANYL
     Indication: Pneumonia
  9. FENTANYL [Suspect]
     Active Substance: FENTANYL
     Indication: Brain injury
  10. FENTANYL [Suspect]
     Active Substance: FENTANYL
     Indication: Pneumococcal infection
  11. FENTANYL [Suspect]
     Active Substance: FENTANYL
     Indication: Cerebral ischaemia
  12. FENTANYL [Suspect]
     Active Substance: FENTANYL
     Indication: Respiratory tract infection
  13. M-M-RVAXPRO [Suspect]
     Active Substance: MEASLES VIRUS STRAIN ENDERS^ ATTENUATED EDMONSTON LIVE ANTIGEN\MUMPS VIRUS STRAIN B LEVEL JERYL LYNN
     Indication: Pneumococcal sepsis
     Route: 065
  14. M-M-RVAXPRO [Suspect]
     Active Substance: MEASLES VIRUS STRAIN ENDERS^ ATTENUATED EDMONSTON LIVE ANTIGEN\MUMPS VIRUS STRAIN B LEVEL JERYL LYNN
     Indication: Immunisation
  15. PROPOFOL [Suspect]
     Active Substance: PROPOFOL
     Indication: Product used for unknown indication
     Route: 065
  16. GENTAMICIN [Suspect]
     Active Substance: GENTAMICIN
     Indication: Antibiotic therapy
     Route: 042
  17. GENTAMICIN [Suspect]
     Active Substance: GENTAMICIN
     Indication: Mumps immunisation
     Route: 065
  18. GENTAMICIN [Suspect]
     Active Substance: GENTAMICIN
     Indication: Antibiotic therapy
     Route: 042
  19. GENTAMICIN [Suspect]
     Active Substance: GENTAMICIN
     Indication: Pneumococcal sepsis
     Route: 042
  20. GENTAMICIN [Suspect]
     Active Substance: GENTAMICIN
     Indication: Rubella immunisation
     Route: 042
  21. GENTAMICIN [Suspect]
     Active Substance: GENTAMICIN
     Indication: Measles immunisation
  22. CEFUROXIME [Suspect]
     Active Substance: CEFUROXIME
     Indication: Antibiotic therapy
     Route: 042
  23. CEFUROXIME [Suspect]
     Active Substance: CEFUROXIME
     Indication: Antibiotic therapy
  24. VENTOLIN [Suspect]
     Active Substance: ALBUTEROL SULFATE
     Indication: Product used for unknown indication
     Route: 065
  25. DORNASE ALFA [Suspect]
     Active Substance: DORNASE ALFA
     Indication: Interstitial lung disease
     Route: 065
  26. DORNASE ALFA [Suspect]
     Active Substance: DORNASE ALFA
     Route: 065
  27. CIPROFLOXACIN [Suspect]
     Active Substance: CIPROFLOXACIN
     Indication: Product used for unknown indication
     Route: 065
  28. MEROPENEM [Suspect]
     Active Substance: MEROPENEM
     Indication: Antibiotic therapy
     Route: 065
  29. MEROPENEM [Suspect]
     Active Substance: MEROPENEM
     Indication: Antibiotic therapy
  30. PIPERACILLIN AND TAZOBACTAM [Suspect]
     Active Substance: PIPERACILLIN SODIUM\TAZOBACTAM SODIUM
     Indication: Vomiting
     Route: 065
  31. PIPERACILLIN AND TAZOBACTAM [Suspect]
     Active Substance: PIPERACILLIN SODIUM\TAZOBACTAM SODIUM
     Indication: Respiratory arrest
     Route: 065
  32. PENICILLIN V [Suspect]
     Active Substance: PENICILLIN V
     Indication: Antibiotic therapy
     Route: 065
  33. PENICILLIN V [Suspect]
     Active Substance: PENICILLIN V
     Indication: Antibiotic therapy
  34. DEXTROSE [Suspect]
     Active Substance: DEXTROSE
     Indication: Pneumonia
     Route: 065
  35. AMOXICILLIN\CLAVULANATE POTASSIUM [Suspect]
     Active Substance: AMOXICILLIN\CLAVULANATE POTASSIUM
     Indication: Pneumonia
     Route: 065
     Dates: start: 20150611
  36. AMOXICILLIN\CLAVULANATE POTASSIUM [Suspect]
     Active Substance: AMOXICILLIN\CLAVULANATE POTASSIUM
     Dosage: UNK
     Route: 065
     Dates: start: 20160714, end: 20160720
  37. POTASSIUM CHLORIDE [Suspect]
     Active Substance: POTASSIUM CHLORIDE
     Indication: Pneumonia
     Route: 065
  38. POTASSIUM CHLORIDE [Suspect]
     Active Substance: POTASSIUM CHLORIDE
     Route: 065
  39. RUBELLA VIRUS STRAIN WISTAR RA 27/3 LIVE ANTIGEN [Suspect]
     Active Substance: RUBELLA VIRUS STRAIN WISTAR RA 27/3 LIVE ANTIGEN
     Indication: Pneumococcal sepsis
     Route: 065
  40. RUBELLA VIRUS STRAIN WISTAR RA 27/3 LIVE ANTIGEN [Suspect]
     Active Substance: RUBELLA VIRUS STRAIN WISTAR RA 27/3 LIVE ANTIGEN
     Route: 065
  41. SODIUM CHLORIDE [Suspect]
     Active Substance: SODIUM CHLORIDE
     Indication: Pneumonia
     Route: 065
  42. SODIUM CHLORIDE [Suspect]
     Active Substance: SODIUM CHLORIDE
     Route: 065
  43. TRISODIUM CITRATE DIHYDRATE [Suspect]
     Active Substance: TRISODIUM CITRATE DIHYDRATE
     Indication: Pneumonia
     Route: 065
  44. TRISODIUM CITRATE DIHYDRATE [Suspect]
     Active Substance: TRISODIUM CITRATE DIHYDRATE
     Dosage: UNK
     Route: 065
  45. AMOXICILLIN TRIHYDRATE [Suspect]
     Active Substance: AMOXICILLIN
     Indication: Product used for unknown indication
     Route: 065
  46. AMOXICILLIN TRIHYDRATE [Suspect]
     Active Substance: AMOXICILLIN
     Route: 065

REACTIONS (49)
  - Sputum increased [Unknown]
  - Condition aggravated [Unknown]
  - Respiratory arrest [Recovered/Resolved]
  - Chest X-ray abnormal [Unknown]
  - Ischaemic cerebral infarction [Fatal]
  - Resuscitation [Unknown]
  - Diarrhoea [Recovered/Resolved]
  - Intestinal ischaemia [Unknown]
  - Circulatory collapse [Fatal]
  - Pneumonia [Unknown]
  - Cerebral ischaemia [Unknown]
  - Pneumococcal sepsis [Recovered/Resolved]
  - Dehydration [Fatal]
  - Muscular weakness [Fatal]
  - Pneumonia aspiration [Fatal]
  - Atelectasis [Fatal]
  - Brain injury [Fatal]
  - Injury [Fatal]
  - Interstitial lung disease [Fatal]
  - Dysphagia [Fatal]
  - Increased bronchial secretion [Fatal]
  - Pyrexia [Fatal]
  - Malaise [Fatal]
  - Motor dysfunction [Fatal]
  - Respiratory tract infection bacterial [Fatal]
  - Dyspnoea [Fatal]
  - Disease complication [Fatal]
  - Inflammation [Fatal]
  - Tachypnoea [Fatal]
  - Lung consolidation [Fatal]
  - Vomiting [Fatal]
  - Secretion discharge [Fatal]
  - Scoliosis [Fatal]
  - Ascites [Fatal]
  - Stoma closure [Fatal]
  - Demyelination [Fatal]
  - Motor neurone disease [Fatal]
  - Metabolic disorder [Fatal]
  - Muscle atrophy [Fatal]
  - Bronchial disorder [Fatal]
  - Mechanical ventilation [Fatal]
  - Dysphagia [Fatal]
  - Brain injury [Fatal]
  - Dyspnoea [Fatal]
  - Lymphadenectomy [Fatal]
  - Lung infiltration [Fatal]
  - Lower respiratory tract infection bacterial [Fatal]
  - Intestinal ischaemia [Fatal]
  - Off label use [Fatal]

NARRATIVE: CASE EVENT DATE: 20160620
